FAERS Safety Report 22235176 (Version 1)
Quarter: 2023Q2

REPORT INFORMATION
  Report Type: Spontaneous
  Country: JP (occurrence: JP)
  Receive Date: 20230420
  Receipt Date: 20230420
  Transmission Date: 20230721
  Serious: Yes (Hospitalization)
  Sender: FDA-Public Use
  Company Number: JP-DSJP-DSJ-2023-115390

PATIENT
  Age: 86 Year
  Sex: Male

DRUGS (1)
  1. EDOXABAN TOSYLATE [Suspect]
     Active Substance: EDOXABAN TOSYLATE
     Indication: Arrhythmia
     Dosage: 60 MG, QD
     Route: 048

REACTIONS (3)
  - International normalised ratio increased [Not Recovered/Not Resolved]
  - Coronavirus test positive [Not Recovered/Not Resolved]
  - Off label use [Unknown]
